FAERS Safety Report 5971485-4 (Version None)
Quarter: 2008Q4

REPORT INFORMATION
  Report Type: 
  Country: None (occurrence: None)
  Receive Date: 20081201
  Receipt Date: 20081119
  Transmission Date: 20090506
  Serious: Yes (Hospitalization, Other)
  Sender: FDA-Public Use
  Company Number: FR-BRISTOL-MYERS SQUIBB COMPANY-14421903

PATIENT
  Age: 74 Year
  Sex: Female

DRUGS (3)
  1. GLUCOPHAGE [Suspect]
     Indication: DIABETES MELLITUS
  2. AMARYL [Suspect]
     Indication: DIABETES MELLITUS
  3. VOLTAREN [Suspect]
     Indication: BACK PAIN
     Dosage: STRENGTH 50 MG.

REACTIONS (4)
  - DIARRHOEA [None]
  - HYPOGLYCAEMIA [None]
  - OVERDOSE [None]
  - RENAL FAILURE ACUTE [None]
